FAERS Safety Report 19062062 (Version 1)
Quarter: 2021Q1

REPORT INFORMATION
  Report Type: Spontaneous
  Country: US (occurrence: US)
  Receive Date: 20210326
  Receipt Date: 20210326
  Transmission Date: 20210420
  Serious: Yes (Life-Threatening, Other)
  Sender: FDA-Public Use
  Company Number: US-GLAXOSMITHKLINE-USCH2021015131

PATIENT
  Age: 70 Year
  Sex: Male

DRUGS (2)
  1. TUMS EX [Suspect]
     Active Substance: CALCIUM CARBONATE
     Indication: DYSPEPSIA
     Dosage: UNK
  2. TUMS REGULAR STRENGTH [Suspect]
     Active Substance: CALCIUM CARBONATE
     Indication: DYSPEPSIA
     Dosage: UNK

REACTIONS (2)
  - Wrong technique in product usage process [Recovered/Resolved]
  - Renal failure [Recovered/Resolved]
